FAERS Safety Report 5658130-2 (Version None)
Quarter: 2008Q1

REPORT INFORMATION
  Report Type: 
  Country: None (occurrence: None)
  Receive Date: 20080306
  Receipt Date: 20080226
  Transmission Date: 20080703
  Serious: Yes (Hospitalization)
  Sender: FDA-Public Use
  Company Number: 024596

PATIENT
  Age: 57 Year
  Sex: Female
  Weight: 47.3 kg

DRUGS (2)
  1. CARBOPLATIN [Suspect]
     Indication: OVARIAN CANCER
     Dosage: 1100MG IN 250ML OF NS (753MG/M2), INTRAVENOUS
     Route: 042
  2. PACLITAXEL [Concomitant]

REACTIONS (6)
  - DRUG TOXICITY [None]
  - HAEMATURIA [None]
  - HYDRONEPHROSIS [None]
  - REFUSAL OF TREATMENT BY PATIENT [None]
  - RENAL FAILURE ACUTE [None]
  - THROMBOSIS [None]
